FAERS Safety Report 23824821 (Version 2)
Quarter: 2024Q3

REPORT INFORMATION
  Report Type: Spontaneous
  Country: FR (occurrence: FR)
  Receive Date: 20240507
  Receipt Date: 20240704
  Transmission Date: 20241016
  Serious: Yes (Other)
  Sender: REGENERON
  Company Number: FR-REGENERON PHARMACEUTICALS, INC.-2024-066485

PATIENT

DRUGS (1)
  1. LIBTAYO [Suspect]
     Active Substance: CEMIPLIMAB-RWLC
     Indication: Product used for unknown indication

REACTIONS (2)
  - Tumour hyperprogression [Unknown]
  - Drug ineffective [Unknown]
